FAERS Safety Report 21145850 (Version 1)
Quarter: 2022Q3

REPORT INFORMATION
  Report Type: Spontaneous
  Country: EG (occurrence: EG)
  Receive Date: 20220729
  Receipt Date: 20220729
  Transmission Date: 20221026
  Serious: Yes (Death, Hospitalization)
  Sender: FDA-Public Use
  Company Number: EG-NOVOPROD-942857

PATIENT
  Age: 43 Year
  Sex: Male

DRUGS (4)
  1. LIRAGLUTIDE [Suspect]
     Active Substance: LIRAGLUTIDE
     Indication: Weight control
     Dosage: ONE INJECTION 2 DAYS
     Route: 058
  2. DIAZEPAM [Suspect]
     Active Substance: DIAZEPAM
     Indication: Anxiety
  3. DIAZEPAM [Suspect]
     Active Substance: DIAZEPAM
     Indication: Sleep disorder
     Dosage: 10 MG , 10 TABLETS
  4. METHYL ALCOHOL [Suspect]
     Active Substance: METHYL ALCOHOL
     Indication: Nephrolithiasis
     Route: 048

REACTIONS (2)
  - Acidosis [Fatal]
  - Hypoglycaemia [Fatal]
